FAERS Safety Report 5173422-1 (Version None)
Quarter: 2006Q4

REPORT INFORMATION
  Report Type: 
  Country: None (occurrence: None)
  Receive Date: 20061207
  Receipt Date: 20061207
  Transmission Date: 20070319
  Serious: No
  Sender: FDA-Public Use
  Company Number: None

PATIENT
  Age: 63 Year
  Sex: Male
  Weight: 113 kg

DRUGS (14)
  1. SEROQUEL [Suspect]
     Indication: DEPRESSION
     Dosage: 25 MG  AT BEDTIME PO
     Route: 048
     Dates: start: 20060726, end: 20060813
  2. COUMADIN [Concomitant]
  3. HEPARIN [Concomitant]
  4. FLUCONAZOLE [Concomitant]
  5. IMIPENEM [Concomitant]
  6. METORPOLOL [Concomitant]
  7. CELEXA [Concomitant]
  8. SYNTHROID [Concomitant]
  9. ARANESP [Concomitant]
  10. PANTOPRAZOLE SODIUM [Concomitant]
  11. ALBUTEROL [Concomitant]
  12. ATROVENT [Concomitant]
  13. LANTUS [Concomitant]
  14. NPH INSULIN [Concomitant]

REACTIONS (1)
  - HYPERGLYCAEMIA [None]
